FAERS Safety Report 18507619 (Version 2)
Quarter: 2020Q4

REPORT INFORMATION
  Report Type: Spontaneous
  Country: US (occurrence: US)
  Receive Date: 20201116
  Receipt Date: 20201123
  Transmission Date: 20210114
  Serious: No
  Sender: FDA-Public Use
  Company Number: US-FRESENIUS KABI-FK202011990

PATIENT
  Sex: Female
  Weight: 99.7 kg

DRUGS (1)
  1. FULVESTRANT INJECTION [Suspect]
     Active Substance: FULVESTRANT
     Indication: PRODUCT USED FOR UNKNOWN INDICATION
     Route: 030
     Dates: start: 20201106, end: 20201106

REACTIONS (1)
  - Skin laceration [Recovering/Resolving]
